FAERS Safety Report 6599526-4 (Version None)
Quarter: 2010Q1

REPORT INFORMATION
  Report Type: 
  Country: None (occurrence: None)
  Receive Date: 20100224
  Receipt Date: 20100216
  Transmission Date: 20100710
  Serious: Yes (Hospitalization)
  Sender: FDA-Public Use
  Company Number: FR-ROCHE-679491

PATIENT
  Sex: Female
  Weight: 73 kg

DRUGS (17)
  1. TOCILIZUMAB [Suspect]
     Indication: RHEUMATOID ARTHRITIS
     Dosage: LAST DOSE PRIOR TO SAE: 24 NOVEMBER 2009
     Route: 042
     Dates: start: 20090507, end: 20091217
  2. TOCILIZUMAB [Suspect]
     Dosage: FORM: INFUSION; RECEIVED IN STUDY MA21573
     Route: 042
     Dates: end: 20090507
  3. DICETEL [Concomitant]
     Dates: start: 20091201
  4. VENTOLIN [Concomitant]
     Dates: start: 20090617
  5. BECOTIDE [Concomitant]
     Dates: start: 20090617
  6. EFFEXOR [Concomitant]
     Dates: start: 20090617
  7. GAVISCON [Concomitant]
     Dosage: TDD: 250MG/183.5 MG/5 ML.
     Dates: start: 20090101
  8. PROPOFAN [Concomitant]
     Dosage: DOSE: 6 TABLETS
     Dates: start: 20091201
  9. NOVATREX [Concomitant]
     Dates: start: 20020604
  10. SPECIAFOLDINE [Concomitant]
     Dates: start: 20020604
  11. CRESTOR [Concomitant]
     Dates: start: 20091029, end: 20100112
  12. DETURGYLONE [Concomitant]
     Dosage: TOTAL DAILY DOSE: 3 PER DAY
     Dates: start: 20091101
  13. ATARAX [Concomitant]
     Dates: start: 20090617
  14. STILNOX [Concomitant]
     Dates: start: 20070101
  15. TAHOR [Concomitant]
     Dates: start: 20100113
  16. CORTANCYL [Concomitant]
     Dates: start: 20100115
  17. INIPOMP [Concomitant]
     Dates: start: 20100115

REACTIONS (1)
  - COGNITIVE DISORDER [None]
